FAERS Safety Report 5923730-9 (Version None)
Quarter: 2008Q4

REPORT INFORMATION
  Report Type: 
  Country: None (occurrence: None)
  Receive Date: 20081020
  Receipt Date: 20081007
  Transmission Date: 20090506
  Serious: Yes (Death)
  Sender: FDA-Public Use
  Company Number: B0542194A

PATIENT
  Age: 3 Month
  Sex: Female

DRUGS (1)
  1. AUGMENTIN '125' [Suspect]
     Indication: DRUG USE FOR UNKNOWN INDICATION
     Dates: start: 20080930

REACTIONS (4)
  - PYREXIA [None]
  - RASH [None]
  - RASH MACULAR [None]
  - VOMITING [None]
